FAERS Safety Report 5269645-3 (Version None)
Quarter: 2007Q1

REPORT INFORMATION
  Report Type: 
  Country: None (occurrence: None)
  Receive Date: 20070312
  Receipt Date: 20070307
  Transmission Date: 20070707
  Serious: Yes (Hospitalization, Other)
  Sender: FDA-Public Use
  Company Number: AUWYE910207MAR07

PATIENT
  Age: 17 Year
  Sex: Female

DRUGS (2)
  1. NORDETTE (LEVONORGESTREL/ETHINYL ESTRADIOL/INERT, TABLET, 0) LOT NO: U [Suspect]
     Indication: CONTRACEPTION
     Dosage: ONE DOSE UNSPECIFIED DAILY ORAL
     Route: 048
     Dates: end: 20060301
  2. MINOCYCLINE HYDROCHLORIDE [Suspect]
     Indication: ACNE
     Dosage: 50 MG DAILY ORAL
     Route: 048
     Dates: end: 20060301

REACTIONS (1)
  - HEPATITIS ACUTE [None]
